FAERS Safety Report 10289736 (Version 2)
Quarter: 2014Q3

REPORT INFORMATION
  Report Type: Spontaneous
  Country: US (occurrence: US)
  Receive Date: 20140710
  Receipt Date: 20140911
  Transmission Date: 20150326
  Serious: Yes (Hospitalization)
  Sender: FDA-Public Use
  Company Number: US-RANBAXY-2014US-83174

PATIENT
  Age: 24 Year
  Sex: Female

DRUGS (5)
  1. FOSCARNET [Suspect]
     Active Substance: FOSCARNET
     Indication: HEPATITIS FULMINANT
  2. ACYCLOVIR. [Suspect]
     Active Substance: ACYCLOVIR
     Indication: HERPES VIRUS INFECTION
     Dosage: UNK
     Route: 042
  3. AZITHROMYCIN [Concomitant]
     Active Substance: AZITHROMYCIN ANHYDROUS
     Indication: PRODUCT USED FOR UNKNOWN INDICATION
     Dosage: UNK
     Route: 065
  4. PIPERACILLIN/TAZOBACTAM [Concomitant]
     Active Substance: PIPERACILLIN SODIUM\TAZOBACTAM SODIUM
     Indication: PRODUCT USED FOR UNKNOWN INDICATION
     Dosage: UNK
     Route: 065
  5. FOSCARNET [Suspect]
     Active Substance: FOSCARNET
     Indication: HERPES ZOSTER DISSEMINATED
     Route: 065

REACTIONS (10)
  - Encephalopathy [Recovered/Resolved]
  - Hypofibrinogenaemia [Recovered/Resolved]
  - Herpes zoster disseminated [Recovering/Resolving]
  - Hepatitis fulminant [Recovering/Resolving]
  - Acute respiratory failure [Recovered/Resolved]
  - Mental status changes [Recovering/Resolving]
  - Disseminated intravascular coagulation [Recovered/Resolved]
  - Drug resistance [Recovered/Resolved]
  - Abortion induced [Recovered/Resolved]
  - Exposure during pregnancy [Recovered/Resolved]
